FAERS Safety Report 4470173-3 (Version None)
Quarter: 2004Q3

REPORT INFORMATION
  Report Type: 
  Country: None (occurrence: None)
  Receive Date: 20040910
  Receipt Date: 20040803
  Transmission Date: 20050211
  Serious: No
  Sender: FDA-Public Use
  Company Number: 2004227188US

PATIENT
  Age: 71 Year
  Sex: Female
  Weight: 72.6 kg

DRUGS (3)
  1. BEXTRA [Suspect]
     Indication: BACK INJURY
     Dosage: 10 MG, QD, ORAL
     Route: 048
     Dates: start: 20040701
  2. VALIUM [Concomitant]
  3. ASPIRIN [Concomitant]

REACTIONS (2)
  - DIZZINESS [None]
  - FEELING ABNORMAL [None]
